FAERS Safety Report 22652195 (Version 1)
Quarter: 2023Q2

REPORT INFORMATION
  Report Type: Spontaneous
  Country: None (occurrence: FR)
  Receive Date: 20230628
  Receipt Date: 20230628
  Transmission Date: 20230722
  Serious: Yes (Hospitalization)
  Sender: FDA-Public Use
  Company Number: FR-Nova Laboratories Limited-2143224

PATIENT
  Age: 33 Year
  Sex: Female

DRUGS (12)
  1. PURIXAN [Suspect]
     Active Substance: MERCAPTOPURINE
     Indication: B-cell type acute leukaemia
     Route: 048
     Dates: start: 20230508, end: 20230521
  2. METHOTREXATE [Suspect]
     Active Substance: METHOTREXATE
     Route: 048
     Dates: start: 20230508, end: 20230515
  3. DELURSAN (URSODEOXYCHOLIC ACID) [Concomitant]
     Dates: start: 20230512
  4. NOMEGESTROL [Concomitant]
     Active Substance: NOMEGESTROL
     Dates: start: 20221217
  5. PRIMPERAN [Concomitant]
     Active Substance: METOCLOPRAMIDE HYDROCHLORIDE
     Dates: start: 20230103
  6. ZELITREX (VALACICLOVIR HYDROCHLORIDE) [Concomitant]
     Dates: start: 20230102
  7. POTASSIUM CHLORIDE [Concomitant]
     Active Substance: POTASSIUM CHLORIDE
  8. NEULASTA [Concomitant]
     Active Substance: PEGFILGRASTIM
     Dates: start: 20230403, end: 20230403
  9. DASATINIB [Suspect]
     Active Substance: DASATINIB
     Route: 048
     Dates: start: 20221223, end: 202305
  10. PREVYMIS (LETERMOVIR) [Concomitant]
     Dates: start: 20230512
  11. ACETAMINOPHEN [Concomitant]
     Active Substance: ACETAMINOPHEN
     Dates: start: 20230109
  12. BACTRIM [Concomitant]
     Active Substance: SULFAMETHOXAZOLE\TRIMETHOPRIM
     Dates: start: 20230104

REACTIONS (2)
  - Gastrointestinal haemorrhage [Recovered/Resolved]
  - Bicytopenia [Not Recovered/Not Resolved]

NARRATIVE: CASE EVENT DATE: 20230523
